FAERS Safety Report 5581250-8 (Version None)
Quarter: 2007Q4

REPORT INFORMATION
  Report Type: 
  Country: None (occurrence: None)
  Receive Date: 20071130
  Receipt Date: 20070702
  Transmission Date: 20080405
  Serious: No
  Sender: FDA-Public Use
  Company Number: US200707001614

PATIENT
  Age: 67 Year
  Sex: Male

DRUGS (10)
  1. BYETTA [Suspect]
     Indication: TYPE 2 DIABETES MELLITUS
     Dosage: 10 UG, 2/D, SUBCUTANEOUS
     Route: 058
     Dates: start: 20070101
  2. GLIPIZIDE [Concomitant]
  3. METFORMIN HCL [Concomitant]
  4. ACTOS /USA/ (PIOGLITAZONE HYDROCHLORIDE) [Concomitant]
  5. FLOMAX [Concomitant]
  6. LIPITOR [Concomitant]
  7. NORVASC [Concomitant]
  8. SYNTHROID [Concomitant]
  9. XALATAN [Concomitant]
  10. ZYRTEC [Concomitant]

REACTIONS (1)
  - BLOOD GLUCOSE FLUCTUATION [None]
